FAERS Safety Report 6409679-6 (Version None)
Quarter: 2009Q4

REPORT INFORMATION
  Report Type: 
  Country: None (occurrence: None)
  Receive Date: 20091021
  Receipt Date: 20091021
  Transmission Date: 20100525
  Serious: Yes (Other)
  Sender: FDA-Public Use
  Company Number: None

PATIENT
  Age: 22 Year
  Sex: Male
  Weight: 83 kg

DRUGS (3)
  1. ATRIPLA [Suspect]
     Indication: HIV INFECTION
     Dosage: 1 TABLET DAILY PO
     Route: 048
     Dates: start: 20070903, end: 20090601
  2. VALTREX [Concomitant]
  3. COMPAZINE [Concomitant]

REACTIONS (1)
  - LIVER FUNCTION TEST ABNORMAL [None]
